FAERS Safety Report 19235793 (Version 2)
Quarter: 2021Q2

REPORT INFORMATION
  Report Type: Spontaneous
  Country: US (occurrence: US)
  Receive Date: 20210510
  Receipt Date: 20210518
  Transmission Date: 20210717
  Serious: Yes (Hospitalization)
  Sender: FDA-Public Use
  Company Number: US-UROGEN PHARMA LTD.-2021-UGN-000025

PATIENT
  Age: 72 Year
  Sex: Male

DRUGS (3)
  1. JELMYTO [Suspect]
     Active Substance: MITOMYCIN
     Dosage: 1 MILLIGRAM (INSTILLATION)
     Dates: start: 20210415, end: 20210415
  2. JELMYTO [Suspect]
     Active Substance: MITOMYCIN
     Indication: PRODUCT USED FOR UNKNOWN INDICATION
     Dosage: 1 MILLIGRAM (INSTILLATION)
     Dates: start: 20210408, end: 20210408
  3. JELMYTO [Suspect]
     Active Substance: MITOMYCIN
     Dosage: 1 MILLIGRAM (INSTILLATION)
     Dates: start: 20210422, end: 20210422

REACTIONS (2)
  - Abdominal pain upper [Unknown]
  - Malaise [Unknown]
